FAERS Safety Report 7880659-7 (Version None)
Quarter: 2011Q4

REPORT INFORMATION
  Report Type: 
  Country: None (occurrence: None)
  Receive Date: 20111101
  Receipt Date: 20100609
  Transmission Date: 20120403
  Serious: No
  Sender: FDA-Public Use
  Company Number: US-BAYER-201026119NA

PATIENT
  Age: 47 Year
  Sex: Male

DRUGS (2)
  1. CLARITIN-D 24 HOUR [Concomitant]
  2. AVELOX [Suspect]
     Indication: SINUSITIS
     Dosage: 400 MG, QD
     Route: 048
     Dates: start: 20100510, end: 20100527

REACTIONS (2)
  - MUSCULOSKELETAL DISCOMFORT [None]
  - TENDONITIS [None]
